FAERS Safety Report 8956613 (Version 1)
Quarter: 2012Q4

REPORT INFORMATION
  Report Type: 
  Country: DE (occurrence: DE)
  Receive Date: 20121210
  Receipt Date: 20121210
  Transmission Date: 20130627
  Serious: Yes (Life-Threatening)
  Sender: FDA-Public Use
  Company Number: DE-ASTRAZENECA-2012SE73189

PATIENT
  Age: 871 Month
  Sex: Female

DRUGS (1)
  1. SEROQUEL PROLONG [Suspect]
     Indication: DEPRESSION
     Route: 048
     Dates: start: 201208, end: 201210

REACTIONS (1)
  - Thrombocytopenia [Not Recovered/Not Resolved]
